FAERS Safety Report 7296894-5 (Version None)
Quarter: 2011Q1

REPORT INFORMATION
  Report Type: 
  Country: None (occurrence: None)
  Receive Date: 20110216
  Receipt Date: 20110208
  Transmission Date: 20110831
  Serious: Yes (Hospitalization, Other)
  Sender: FDA-Public Use
  Company Number: US-JNJFOC-20110203203

PATIENT
  Age: 17 Year
  Sex: Male

DRUGS (10)
  1. TOPIRAMATE [Suspect]
     Indication: PAIN
     Route: 048
  2. LIDOCAINE [Suspect]
     Indication: PAIN
     Route: 061
  3. ACETAMINOPHEN [Suspect]
     Route: 065
  4. CAPSAICIN [Suspect]
     Indication: PAIN
     Route: 061
  5. PREGABALIN [Suspect]
     Indication: PAIN
     Route: 065
  6. TRAMADOL HYDROCHLORIDE [Suspect]
     Indication: PAIN
     Route: 065
  7. NAPROXEN [Suspect]
     Indication: PAIN
     Route: 065
  8. HYDROMORPHONE [Suspect]
     Indication: PAIN
     Route: 065
  9. AMITRIPTYLINE [Suspect]
     Indication: PAIN
     Route: 065
  10. ACETAMINOPHEN [Suspect]
     Indication: PAIN
     Route: 065

REACTIONS (2)
  - WEIGHT DECREASED [None]
  - DRUG INEFFECTIVE [None]
